FAERS Safety Report 7101767-4 (Version None)
Quarter: 2010Q4

REPORT INFORMATION
  Report Type: 
  Country: None (occurrence: None)
  Receive Date: 20101115
  Receipt Date: 20101104
  Transmission Date: 20110411
  Serious: Yes (Other)
  Sender: FDA-Public Use
  Company Number: US-TYCO HEALTHCARE/MALLINCKRODT-T201002249

PATIENT
  Age: 79 Year

DRUGS (4)
  1. OPTIRAY 350 [Suspect]
     Indication: ARTERIOGRAM CORONARY
     Dosage: 136.5 UNK, UNK
     Route: 042
  2. SODIUM BICARBONATE [Concomitant]
     Indication: PREMEDICATION
     Dosage: 3.9 G GIVEN 20 MINUTES PRIOR TO CONTRAST
     Route: 048
  3. SODIUM BICARBONATE [Concomitant]
     Dosage: 1.95 G 2 HRS AFTER INITIAL DOSE
     Route: 048
  4. SODIUM BICARBONATE [Concomitant]
     Dosage: 1.95 G GIVE 4 HRS AFTER INITIAL DOSE
     Route: 048

REACTIONS (1)
  - NEPHROPATHY [None]
